FAERS Safety Report 8934498 (Version 1)
Quarter: 2012Q4

REPORT INFORMATION
  Report Type: 
  Country: US (occurrence: US)
  Receive Date: 20121129
  Receipt Date: 20121129
  Transmission Date: 20130627
  Serious: No
  Sender: FDA-Public Use
  Company Number: US-GLAXOSMITHKLINE-A0956701A

PATIENT
  Sex: Male

DRUGS (4)
  1. FLOVENT [Suspect]
     Indication: SARCOIDOSIS
     Dosage: 2PUFF Twice per day
     Route: 055
     Dates: start: 201106
  2. OTHER MEDICATIONS [Concomitant]
  3. VENTOLIN [Concomitant]
  4. ALBUTEROL NEBULIZER [Concomitant]

REACTIONS (2)
  - Dizziness [Not Recovered/Not Resolved]
  - Muscular weakness [Unknown]
